FAERS Safety Report 4781214-8 (Version None)
Quarter: 2005Q3

REPORT INFORMATION
  Report Type: 
  Country: None (occurrence: None)
  Receive Date: 20050928
  Receipt Date: 20050601
  Transmission Date: 20060218
  Serious: Yes (Hospitalization, Other)
  Sender: FDA-Public Use
  Company Number: 2005UW14156

PATIENT
  Sex: Female

DRUGS (3)
  1. SEROQUEL [Suspect]
     Indication: BIPOLAR DISORDER
     Route: 048
  2. LITHIUM [Concomitant]
  3. TRILEPTAL [Concomitant]

REACTIONS (2)
  - ASTHENIA [None]
  - IMPAIRED SELF-CARE [None]
